FAERS Safety Report 4555633-9 (Version None)
Quarter: 2005Q1

REPORT INFORMATION
  Report Type: 
  Country: None (occurrence: None)
  Receive Date: 20050111
  Receipt Date: 20040914
  Transmission Date: 20050727
  Serious: No
  Sender: FDA-Public Use
  Company Number: 2004S1000190

PATIENT
  Age: 41 Year
  Sex: Female
  Weight: 91 kg

DRUGS (5)
  1. CUBICIN [Suspect]
     Indication: ENDOCARDITIS
     Dosage: 500 MG;Q24H;IV
     Route: 042
     Dates: start: 20040903
  2. CUBICIN [Suspect]
     Indication: STAPHYLOCOCCAL BACTERAEMIA
     Dosage: 500 MG;Q24H;IV
     Route: 042
     Dates: start: 20040903
  3. COLISTIN SULFATE [Suspect]
     Indication: BACTERIAL INFECTION
     Dosage: 150 MG;Q8H;IV
     Route: 042
     Dates: start: 20040901, end: 20040911
  4. RIFAMPIN [Concomitant]
  5. VANCOMYCIN [Concomitant]

REACTIONS (1)
  - BLOOD CREATININE INCREASED [None]
